FAERS Safety Report 16117056 (Version 1)
Quarter: 2019Q1

REPORT INFORMATION
  Report Type: Spontaneous
  Country: US (occurrence: US)
  Receive Date: 20190326
  Receipt Date: 20190326
  Transmission Date: 20190418
  Serious: No
  Sender: FDA-Public Use
  Company Number: US-PFIZER INC-2019122159

PATIENT
  Age: 60 Year
  Sex: Male
  Weight: 113.4 kg

DRUGS (3)
  1. IVGG [Concomitant]
     Active Substance: HUMAN IMMUNOGLOBULIN G
     Indication: IMMUNISATION
     Dosage: UNK (INFUSED EVERY 3 WEEKS INTO THE CELL MEMBRANES )
     Route: 040
  2. LYRICA [Suspect]
     Active Substance: PREGABALIN
     Indication: CHRONIC INFLAMMATORY DEMYELINATING POLYRADICULONEUROPATHY
     Dosage: 75 MG, UNK
  3. LYRICA [Suspect]
     Active Substance: PREGABALIN
     Dosage: 150 MG, 2X/DAY
     Route: 048
     Dates: start: 2017

REACTIONS (1)
  - Drug ineffective for unapproved indication [Unknown]
